FAERS Safety Report 13165365 (Version 6)
Quarter: 2018Q2

REPORT INFORMATION
  Report Type: Report from Study
  Country: None (occurrence: US)
  Receive Date: 20170131
  Receipt Date: 20180507
  Transmission Date: 20180711
  Serious: Yes (Hospitalization, Other)
  Sender: FDA-Public Use
  Company Number: US-ABBVIE-17K-163-1849599-00

PATIENT
  Sex: Male

DRUGS (1)
  1. HUMIRA [Suspect]
     Active Substance: ADALIMUMAB
     Indication: CROHN^S DISEASE
     Route: 058

REACTIONS (5)
  - Hip fracture [Unknown]
  - Migraine [Recovering/Resolving]
  - Cardiac arrest [Recovered/Resolved]
  - Blood pressure abnormal [Recovering/Resolving]
  - Loss of consciousness [Not Recovered/Not Resolved]
